FAERS Safety Report 7483048-2 (Version None)
Quarter: 2011Q2

REPORT INFORMATION
  Report Type: 
  Country: None (occurrence: None)
  Receive Date: 20110516
  Receipt Date: 20110511
  Transmission Date: 20111010
  Serious: Yes (Hospitalization)
  Sender: FDA-Public Use
  Company Number: FR-PFIZER INC-2011091365

PATIENT
  Age: 67 Year
  Sex: Female

DRUGS (10)
  1. KETALAR [Suspect]
     Indication: GENERAL ANAESTHESIA
     Dosage: 30 MG, SINGLE
     Route: 042
     Dates: start: 20110107, end: 20110107
  2. ACETAMINOPHEN [Suspect]
     Indication: GENERAL ANAESTHESIA
     Dosage: 1 G, SINGLE
     Route: 042
     Dates: start: 20110107, end: 20110107
  3. LYSANXIA [Concomitant]
     Route: 048
  4. DIPRIVAN [Suspect]
     Indication: GENERAL ANAESTHESIA
     Dosage: 260 MG, SINGLE
     Route: 042
     Dates: start: 20110107, end: 20110107
  5. EPHEDRINE [Suspect]
     Indication: GENERAL ANAESTHESIA
     Dosage: 3 MG, SINGLE
     Route: 042
     Dates: start: 20110107, end: 20110107
  6. SEVOFLURANE [Suspect]
     Indication: GENERAL ANAESTHESIA
     Dosage: 90 MINUTES
     Route: 055
     Dates: start: 20110107, end: 20110107
  7. MIDAZOLAM HYDROCHLORIDE [Suspect]
     Indication: GENERAL ANAESTHESIA
     Dosage: 2 MG, SINGLE
     Route: 042
     Dates: start: 20110107, end: 20110107
  8. EFFEXOR [Concomitant]
     Route: 048
  9. SUFENTA PRESERVATIVE FREE [Suspect]
     Indication: GENERAL ANAESTHESIA
     Dosage: 20 UG, SINGLE
     Route: 042
     Dates: start: 20110107, end: 20110107
  10. SOLU-MEDROL [Suspect]
     Indication: GENERAL ANAESTHESIA
     Dosage: 120 MG, SINGLE
     Route: 042
     Dates: start: 20110107, end: 20110107

REACTIONS (1)
  - HEPATITIS ACUTE [None]
